FAERS Safety Report 13726851 (Version 3)
Quarter: 2017Q3

REPORT INFORMATION
  Report Type: Spontaneous
  Country: US (occurrence: US)
  Receive Date: 20170706
  Receipt Date: 20170731
  Transmission Date: 20171127
  Serious: No
  Sender: FDA-Public Use
  Company Number: US-PFIZER INC-2017291103

PATIENT
  Sex: Female

DRUGS (2)
  1. METHOTREXATE SODIUM. [Suspect]
     Active Substance: METHOTREXATE SODIUM
     Dosage: UNK
  2. ENBREL [Suspect]
     Active Substance: ETANERCEPT
     Dosage: UNK

REACTIONS (6)
  - Joint range of motion decreased [Unknown]
  - Mean cell haemoglobin increased [Unknown]
  - Tenderness [Unknown]
  - Arthralgia [Unknown]
  - Swelling [Unknown]
  - Joint dislocation [Unknown]
